FAERS Safety Report 21699767 (Version 9)
Quarter: 2023Q2

REPORT INFORMATION
  Report Type: Spontaneous
  Country: US (occurrence: US)
  Receive Date: 20221208
  Receipt Date: 20230608
  Transmission Date: 20230722
  Serious: No
  Sender: FDA-Public Use
  Company Number: US-PFIZER INC-PV202200118587

PATIENT
  Age: 60 Year
  Sex: Female

DRUGS (2)
  1. IBRANCE [Suspect]
     Active Substance: PALBOCICLIB
     Dosage: 125 MG
  2. IBRANCE [Suspect]
     Active Substance: PALBOCICLIB
     Dosage: 125 MG
     Dates: start: 20230526

REACTIONS (9)
  - Dyspnoea [Not Recovered/Not Resolved]
  - White blood cell count decreased [Unknown]
  - Chest discomfort [Recovered/Resolved]
  - Aphthous ulcer [Recovered/Resolved]
  - Gingival bleeding [Unknown]
  - Constipation [Unknown]
  - Cough [Unknown]
  - Stomatitis [Unknown]
  - Restlessness [Unknown]

NARRATIVE: CASE EVENT DATE: 20221121
